FAERS Safety Report 4604834-X (Version None)
Quarter: 2005Q1

REPORT INFORMATION
  Report Type: 
  Country: None (occurrence: None)
  Receive Date: 20050311
  Receipt Date: 20050228
  Transmission Date: 20050727
  Serious: Yes (Life-Threatening)
  Sender: FDA-Public Use
  Company Number: US-JNJFOC-20050300173

PATIENT
  Sex: Female
  Weight: 69.85 kg

DRUGS (7)
  1. INFLIXIMAB [Suspect]
     Route: 042
  2. INFLIXIMAB [Suspect]
     Route: 042
  3. INFLIXIMAB [Suspect]
     Route: 042
  4. INFLIXIMAB [Suspect]
     Indication: CROHN'S DISEASE
     Route: 042
  5. CITRUCEL [Concomitant]
  6. QUININE SULFATE [Concomitant]
  7. IMODIUM [Concomitant]

REACTIONS (2)
  - HEPATIC FAILURE [None]
  - SARCOIDOSIS [None]
